FAERS Safety Report 7197548-6 (Version None)
Quarter: 2010Q4

REPORT INFORMATION
  Report Type: 
  Country: None (occurrence: None)
  Receive Date: 20101227
  Receipt Date: 20101222
  Transmission Date: 20110411
  Serious: Yes (Other)
  Sender: FDA-Public Use
  Company Number: DE-SANOFI-AVENTIS-2010SA033040

PATIENT
  Age: 69 Year
  Sex: Female
  Weight: 80 kg

DRUGS (7)
  1. MULTAQ [Suspect]
     Indication: ATRIAL FIBRILLATION
     Dosage: DAILY DOSE: 2 DF DOSAGE FORM EVERY DAY
     Route: 048
     Dates: start: 20100122, end: 20100331
  2. MULTAQ [Suspect]
     Dosage: DAILY DOSE: 2 DF DOSAGE FORM EVERY DAY
     Route: 048
     Dates: start: 20100401, end: 20100407
  3. MULTAQ [Suspect]
     Dosage: DAILY DOSE: 2 DF DOSAGE FORM EVERY DAY
     Route: 048
     Dates: start: 20100716, end: 20100830
  4. RAMIPRIL [Concomitant]
     Indication: HYPERTENSION
     Dosage: DAILY DOSE: 1 DF DOSAGE FORM EVERY DAY
     Route: 048
     Dates: start: 20070101
  5. METOPROLOL TARTRATE [Concomitant]
     Indication: HYPERTENSION
     Dosage: DAILY DOSE: 0.5 DF DOSAGE FORM EVERY DAY
     Route: 048
     Dates: start: 20070101
  6. METOPROLOL TARTRATE [Concomitant]
     Indication: ATRIAL FIBRILLATION
     Dosage: DAILY DOSE: 0.5 DF DOSAGE FORM EVERY DAY
     Route: 048
     Dates: start: 20070101
  7. MARCUMAR [Concomitant]
     Indication: ATRIAL FIBRILLATION
     Dosage: 1/2-0-1/2 DAILY
     Route: 048
     Dates: start: 20090401

REACTIONS (8)
  - ALANINE AMINOTRANSFERASE INCREASED [None]
  - ASPARTATE AMINOTRANSFERASE INCREASED [None]
  - ERYTHEMA [None]
  - FEELING HOT [None]
  - GAMMA-GLUTAMYLTRANSFERASE INCREASED [None]
  - HEPATOTOXICITY [None]
  - LIP SWELLING [None]
  - PHOTOSENSITIVITY REACTION [None]
